FAERS Safety Report 18851789 (Version 3)
Quarter: 2021Q1

REPORT INFORMATION
  Report Type: Spontaneous
  Country: JP (occurrence: JP)
  Receive Date: 20210205
  Receipt Date: 20210301
  Transmission Date: 20210420
  Serious: Yes (Death, Hospitalization, Other)
  Sender: FDA-Public Use
  Company Number: JP-AMGEN-JPNSP2021018687

PATIENT
  Age: 83 Year
  Sex: Female
  Weight: 43.2 kg

DRUGS (4)
  1. CALCITRIOL. [Concomitant]
     Active Substance: CALCITRIOL
     Indication: HYPERPARATHYROIDISM SECONDARY
     Dosage: 1 UG, Q56H
     Route: 042
     Dates: end: 20191104
  2. PRECIPITATED CALCIUM CARBONATE [Concomitant]
     Active Substance: CALCIUM CARBONATE
     Dosage: 1500 MG, EVERYDAY
     Route: 065
     Dates: end: 20191104
  3. EPOGIN [Concomitant]
     Active Substance: ERYTHROPOIETIN
     Dosage: 6000 IU, QW
     Route: 065
     Dates: end: 20191104
  4. PARSABIV [Suspect]
     Active Substance: ETELCALCETIDE HYDROCHLORIDE
     Indication: HYPERPARATHYROIDISM SECONDARY
     Dosage: 5 MILLIGRAM, QWK
     Route: 010
     Dates: start: 20191023, end: 20191104

REACTIONS (3)
  - Traumatic intracranial haematoma [Not Recovered/Not Resolved]
  - Multiple organ dysfunction syndrome [Fatal]
  - Road traffic accident [Unknown]

NARRATIVE: CASE EVENT DATE: 20191103
